FAERS Safety Report 11491385 (Version 2)
Quarter: 2015Q4

REPORT INFORMATION
  Report Type: Spontaneous
  Country: PL (occurrence: PL)
  Receive Date: 20150910
  Receipt Date: 20151028
  Transmission Date: 20160304
  Serious: Yes (Death, Other)
  Sender: FDA-Public Use
  Company Number: PL-TEVA-590114ISR

PATIENT
  Age: 64 Year
  Sex: Female
  Weight: 86 kg

DRUGS (2)
  1. CISPLATIN TEVA [Suspect]
     Active Substance: CISPLATIN
     Indication: RESPIRATORY TRACT NEOPLASM
     Route: 042
     Dates: start: 20150805, end: 20150807
  2. ETOPOSID EBEWE [Suspect]
     Active Substance: ETOPOSIDE
     Indication: RESPIRATORY TRACT NEOPLASM
     Route: 042
     Dates: start: 20150805, end: 20150807

REACTIONS (4)
  - Neutropenia [Not Recovered/Not Resolved]
  - Pyrexia [Not Recovered/Not Resolved]
  - Disease progression [Fatal]
  - Respiratory failure [Fatal]

NARRATIVE: CASE EVENT DATE: 20150815
